FAERS Safety Report 7395668-4 (Version None)
Quarter: 2011Q2

REPORT INFORMATION
  Report Type: 
  Country: None (occurrence: None)
  Receive Date: 20110405
  Receipt Date: 20110328
  Transmission Date: 20111010
  Serious: Yes (Other)
  Sender: FDA-Public Use
  Company Number: US-US-EMD SERONO, INC.-7048137

PATIENT
  Sex: Male

DRUGS (4)
  1. MIRALAX [Concomitant]
     Indication: CONSTIPATION
  2. ASPIRIN [Concomitant]
  3. VYTORIN [Concomitant]
  4. REBIF [Suspect]
     Indication: MULTIPLE SCLEROSIS
     Route: 058
     Dates: start: 20050620

REACTIONS (2)
  - PROSTATIC DISORDER [None]
  - INFLUENZA LIKE ILLNESS [None]
